FAERS Safety Report 5417455-6 (Version None)
Quarter: 2007Q3

REPORT INFORMATION
  Report Type: 
  Country: None (occurrence: None)
  Receive Date: 20070718
  Receipt Date: 20070410
  Transmission Date: 20080115
  Serious: Yes (Hospitalization, Disabling, Other)
  Sender: FDA-Public Use
  Company Number: 2007028659

PATIENT
  Age: 76 Year
  Sex: Female
  Weight: 83.9 kg

DRUGS (7)
  1. CELEBREX [Suspect]
     Indication: ARTHRITIS
     Dosage: 100-200MG (TWICE DAILY)
     Dates: start: 20000401, end: 20010201
  2. VIOXX [Suspect]
     Indication: ARTHRITIS
     Dosage: 50 MG (25 MG, 2 IN 1 D)
     Dates: start: 20000401, end: 20010501
  3. VIOXX [Suspect]
     Indication: PAIN
     Dosage: 50 MG (25 MG, 2 IN 1 D)
     Dates: start: 20000401, end: 20010501
  4. DAYPRO [Concomitant]
  5. CLARITIN [Concomitant]
  6. CYCLOBENZAPRINE [Concomitant]
  7. GLUCOPHAGE [Concomitant]

REACTIONS (2)
  - CEREBROVASCULAR ACCIDENT [None]
  - TRANSIENT ISCHAEMIC ATTACK [None]
